FAERS Safety Report 8942251 (Version 1)
Quarter: 2012Q4

REPORT INFORMATION
  Report Type: Spontaneous
  Country: US (occurrence: None)
  Receive Date: 20121129
  Receipt Date: 20121129
  Transmission Date: 20130627
  Serious: Yes (Hospitalization)
  Sender: FDA-Public Use
  Company Number: None

PATIENT
  Age: 60 Year
  Sex: Female
  Weight: 59.9 kg

DRUGS (1)
  1. CISPLATIN [Suspect]
     Indication: CARCINOMA
     Dosage: 168 MG  Other  IV
     Route: 042
     Dates: start: 20120904

REACTIONS (9)
  - Vomiting [None]
  - Retching [None]
  - Dysgeusia [None]
  - Dysphagia [None]
  - Weight decreased [None]
  - Oral pain [None]
  - Radiation injury [None]
  - Loss of consciousness [None]
  - Nausea [None]
